FAERS Safety Report 7422811-0 (Version None)
Quarter: 2011Q2

REPORT INFORMATION
  Report Type: 
  Country: None (occurrence: None)
  Receive Date: 20110419
  Receipt Date: 20091220
  Transmission Date: 20111010
  Serious: Yes (Death, Hospitalization, Other)
  Sender: FDA-Public Use
  Company Number: US-BAYER-201039425NA

PATIENT
  Age: 78 Year
  Sex: Female
  Weight: 63.492 kg

DRUGS (13)
  1. TORSEMIDE [Concomitant]
     Route: 048
  2. PLATELETS [Concomitant]
     Dosage: 10 U, UNK
     Dates: start: 20050517
  3. RED BLOOD CELLS [Concomitant]
     Dosage: 6 U, UNK
     Dates: start: 20050517
  4. HEPARIN [Concomitant]
     Dosage: UNK
     Route: 042
     Dates: start: 20050517
  5. FRESH FROZEN PLASMA [Concomitant]
     Dosage: 2 U, UNK
     Dates: start: 20050517
  6. TRASYLOL [Suspect]
     Indication: AORTIC VALVE REPLACEMENT
     Dosage: TRASYLOL SINCE BEGINNING - FULL DOSE
     Route: 042
     Dates: start: 20050517
  7. LASIX [Concomitant]
     Dosage: UNK
     Route: 048
     Dates: start: 20020101
  8. MANNITOL [Concomitant]
     Dosage: UNK
     Route: 042
     Dates: start: 20050517
  9. ACETYLSALICYLIC ACID SRT [Concomitant]
     Dosage: UNK
     Route: 048
     Dates: start: 19910101
  10. ZINACEF [Concomitant]
     Dosage: 1.5 GM
     Route: 042
     Dates: start: 20050517
  11. SODIUM NITROPRUSSIDE [Concomitant]
     Dosage: UNK
     Route: 042
     Dates: start: 20050517
  12. VANCOMYCIN [Concomitant]
     Dosage: UNK
     Route: 042
     Dates: start: 20050517
  13. ASPIRIN [Concomitant]
     Route: 048

REACTIONS (11)
  - FEAR [None]
  - ANHEDONIA [None]
  - RENAL FAILURE [None]
  - MYOCARDIAL INFARCTION [None]
  - SEPSIS [None]
  - URINARY TRACT INFECTION [None]
  - UNEVALUABLE EVENT [None]
  - DEPRESSION [None]
  - INJURY [None]
  - ANXIETY [None]
  - PAIN [None]
